FAERS Safety Report 9311903 (Version 3)
Quarter: 2013Q3

REPORT INFORMATION
  Report Type: Spontaneous
  Country: US (occurrence: None)
  Receive Date: 20130211
  Receipt Date: 20130815
  Transmission Date: 20140515
  Serious: Yes (Hospitalization, Other)
  Sender: FDA-Public Use
  Company Number: ADR-2013-00204

PATIENT
  Sex: Male

DRUGS (1)
  1. LIORESAL [Suspect]
     Indication: MUSCLE SPASTICITY

REACTIONS (12)
  - Pocket erosion [None]
  - Application site hypersensitivity [None]
  - Hyperhidrosis [None]
  - Muscle spasticity [None]
  - Underdose [None]
  - Wound dehiscence [None]
  - Implant site discharge [None]
  - Implant site erosion [None]
  - Hypersensitivity [None]
  - Hypertonia [None]
  - Hyperhidrosis [None]
  - Implant site pain [None]
